FAERS Safety Report 7003881-0 (Version None)
Quarter: 2010Q3

REPORT INFORMATION
  Report Type: 
  Country: None (occurrence: None)
  Receive Date: 20100920
  Receipt Date: 20100108
  Transmission Date: 20110219
  Serious: No
  Sender: FDA-Public Use
  Company Number: US-WYE-H12855610

PATIENT
  Sex: Female

DRUGS (1)
  1. TORISEL [Suspect]
     Dosage: DOSE AND DATES OF THERAPY NOT PROVIDED
     Route: 042

REACTIONS (2)
  - FLUID OVERLOAD [None]
  - PNEUMONIA BACTERIAL [None]
